FAERS Safety Report 10152127 (Version 2)
Quarter: 2014Q2

REPORT INFORMATION
  Report Type: Report from Study
  Country: US (occurrence: US)
  Receive Date: 20140505
  Receipt Date: 20140505
  Transmission Date: 20141212
  Serious: Yes (Hospitalization)
  Sender: FDA-Public Use
  Company Number: PHEH2014US008531

PATIENT
  Sex: Male

DRUGS (1)
  1. NEORAL [Suspect]
     Dosage: 300 MG, UNK
     Route: 048

REACTIONS (2)
  - Swelling [Unknown]
  - Fluid retention [Unknown]
